FAERS Safety Report 5801858-1 (Version None)
Quarter: 2008Q3

REPORT INFORMATION
  Report Type: 
  Country: None (occurrence: None)
  Receive Date: 20080707
  Receipt Date: 20080703
  Transmission Date: 20090109
  Serious: Yes (Hospitalization)
  Sender: FDA-Public Use
  Company Number: US-BRISTOL-MYERS SQUIBB COMPANY-14250302

PATIENT
  Age: 53 Year
  Sex: Male

DRUGS (12)
  1. CARBOPLATIN [Suspect]
     Indication: NON-SMALL CELL LUNG CANCER
     Dosage: 1 DOSAGE FORM =6 AUC, INITIAL DOSE ON 09APR2008 DAY1 EVERY 21 DAYS,LAST DOSE ON 30APR2008
     Route: 042
     Dates: start: 20080430, end: 20080430
  2. ALIMTA [Suspect]
     Indication: NON-SMALL CELL LUNG CANCER
     Dosage: INITIAL DOSE ON 09APR2008 DAY1 EVERY 21 DAYS,LAST DOSE ON 30APR2008
     Route: 042
     Dates: start: 20080430, end: 20080430
  3. AVASTIN [Suspect]
     Indication: NON-SMALL CELL LUNG CANCER
     Dosage: INITIAL DOSE ON 09APR2008 DAY1 EVERY 21 DAYS,LAST DOSE ON 30APR2008
     Route: 042
     Dates: start: 20080430, end: 20080430
  4. ENZASTAURIN [Suspect]
     Indication: NON-SMALL CELL LUNG CANCER
     Dosage: LOADING DOSE 3TABS TID ON 1APR2008 DAY1, 4 TABS DAILY ON 02APR2008 AND 21MAY2008
     Route: 048
     Dates: start: 20080521, end: 20080521
  5. FOLIC ACID [Concomitant]
     Dates: start: 20080401
  6. METOPROLOL SUCCINATE [Concomitant]
  7. ADVICOR [Concomitant]
  8. ASPIRIN [Concomitant]
  9. WARFARIN SODIUM [Concomitant]
     Dates: start: 20080521
  10. OXYCODONE HCL [Concomitant]
  11. TYLENOL [Concomitant]
  12. NITROGLYCERIN [Concomitant]

REACTIONS (5)
  - COLONIC STENOSIS [None]
  - CONSTIPATION [None]
  - DIVERTICULITIS [None]
  - ILEUS [None]
  - INTESTINAL OBSTRUCTION [None]
